FAERS Safety Report 6778083-3 (Version None)
Quarter: 2010Q2

REPORT INFORMATION
  Report Type: 
  Country: None (occurrence: None)
  Receive Date: 20100618
  Receipt Date: 20100609
  Transmission Date: 20101027
  Serious: No
  Sender: FDA-Public Use
  Company Number: US-BIOGENIDEC-2010BI019120

PATIENT
  Age: 28 Year
  Sex: Female

DRUGS (2)
  1. AVONEX [Suspect]
     Indication: MULTIPLE SCLEROSIS
     Route: 030
     Dates: start: 19980411, end: 20030211
  2. AVONEX [Suspect]
     Route: 030
     Dates: start: 20080614, end: 20100301

REACTIONS (5)
  - CHEST DISCOMFORT [None]
  - DENTAL CARIES [None]
  - TOOTH ABSCESS [None]
  - TOOTH LOSS [None]
  - TOOTHACHE [None]
